FAERS Safety Report 10344631 (Version 1)
Quarter: 2014Q3

REPORT INFORMATION
  Report Type: Spontaneous
  Country: US (occurrence: US)
  Receive Date: 20140728
  Receipt Date: 20140728
  Transmission Date: 20150326
  Serious: Yes (Life-Threatening, Hospitalization)
  Sender: FDA-Public Use
  Company Number: US-JNJFOC-20140713469

PATIENT
  Age: 58 Year
  Sex: Male
  Weight: 94.53 kg

DRUGS (3)
  1. DEPAKOTE [Concomitant]
     Active Substance: DIVALPROEX SODIUM
     Indication: MANIA
     Route: 048
  2. ETODOLAC. [Concomitant]
     Active Substance: ETODOLAC
     Route: 048
  3. XARELTO [Suspect]
     Active Substance: RIVAROXABAN
     Indication: PULMONARY EMBOLISM
     Route: 048
     Dates: start: 20140716, end: 20140717

REACTIONS (4)
  - Blood creatinine increased [Unknown]
  - Hypersensitivity [Not Recovered/Not Resolved]
  - Angioedema [Not Recovered/Not Resolved]
  - Hypotension [Not Recovered/Not Resolved]

NARRATIVE: CASE EVENT DATE: 20140717
